FAERS Safety Report 8788973 (Version 1)
Quarter: 2012Q4

REPORT INFORMATION
  Report Type: Report from Study
  Country: JP (occurrence: JP)
  Receive Date: 20120917
  Receipt Date: 20120917
  Transmission Date: 20130627
  Serious: Yes (Hospitalization)
  Sender: FDA-Public Use
  Company Number: JP-009507513-1208JPN002033

PATIENT

DRUGS (22)
  1. PEGINTRON [Suspect]
     Indication: HEPATITIS C
     Dosage: 1.5mcg/kg/week
     Route: 058
     Dates: start: 20120319
  2. REBETOL [Suspect]
     Indication: HEPATITIS C
     Route: 048
     Dates: start: 20120319, end: 20120514
  3. TELAVIC [Suspect]
     Indication: HEPATITIS C
     Route: 048
     Dates: start: 20120319
  4. TELAVIC [Suspect]
     Route: 048
     Dates: start: 20120501, end: 20120507
  5. TELAVIC [Suspect]
     Route: 048
     Dates: start: 20120508, end: 20120514
  6. PREDONINE [Suspect]
     Route: 051
     Dates: start: 20120321
  7. PREDONINE [Suspect]
     Route: 048
     Dates: start: 20120323
  8. PREDONINE [Suspect]
     Route: 048
     Dates: start: 20120326
  9. PREDONINE [Suspect]
     Route: 048
     Dates: start: 20120329
  10. PREDONINE [Suspect]
     Route: 048
     Dates: start: 20120402
  11. PREDONINE [Suspect]
     Route: 048
     Dates: start: 20120409
  12. PREDONINE [Suspect]
     Route: 048
     Dates: start: 20120415
  13. PREDONINE [Suspect]
     Route: 048
     Dates: start: 20120423
  14. BLOPRESS [Concomitant]
     Indication: HYPERTENSION
     Dosage: 12 mg, Once
     Route: 048
     Dates: start: 20090202, end: 20120415
  15. BLOPRESS [Concomitant]
     Dosage: 8 mg, Once
     Route: 048
     Dates: start: 20120416, end: 20120528
  16. BLADDERON [Concomitant]
     Indication: NOCTURIA
     Route: 048
     Dates: start: 20100222
  17. CALBLOCK [Concomitant]
     Indication: HYPERTENSION
     Route: 048
     Dates: start: 20110530, end: 20120501
  18. FLIVAS [Concomitant]
     Indication: BENIGN PROSTATIC HYPERPLASIA
     Route: 048
     Dates: start: 20111128
  19. NAUZELIN [Concomitant]
     Indication: PROPHYLAXIS
     Route: 048
     Dates: start: 20120319
  20. ALLELOCK [Concomitant]
     Indication: PROPHYLAXIS
     Route: 048
     Dates: start: 20120319, end: 20120402
  21. URSO [Concomitant]
     Indication: HEPATITIS C
     Route: 048
     Dates: start: 20120416, end: 20120514
  22. TAKEPRON [Concomitant]
     Indication: PROPHYLAXIS
     Route: 048

REACTIONS (3)
  - Diabetes mellitus [Not Recovered/Not Resolved]
  - Renal impairment [Not Recovered/Not Resolved]
  - Anaemia [Not Recovered/Not Resolved]
